FAERS Safety Report 5991441-X (Version None)
Quarter: 2008Q4

REPORT INFORMATION
  Report Type: 
  Country: None (occurrence: None)
  Receive Date: 20081211
  Receipt Date: 20081205
  Transmission Date: 20090506
  Serious: Yes (Other)
  Sender: FDA-Public Use
  Company Number: FR-WYE-G02725508

PATIENT
  Sex: Male

DRUGS (7)
  1. ADVIL [Suspect]
     Indication: PYREXIA
     Route: 048
     Dates: start: 20081120, end: 20081129
  2. ADVIL [Suspect]
     Indication: NASOPHARYNGITIS
  3. ADVIL [Suspect]
     Indication: TEETHING
  4. HELICIDINE [Concomitant]
     Indication: NASOPHARYNGITIS
     Dosage: UNKNOWN
     Route: 048
     Dates: start: 20081120, end: 20081101
  5. DOLIPRANE [Concomitant]
     Indication: PYREXIA
     Dosage: UNKNOWN
     Route: 054
     Dates: start: 20081120, end: 20081101
  6. DOLIPRANE [Concomitant]
     Indication: NASOPHARYNGITIS
  7. DOLIPRANE [Concomitant]
     Indication: TEETHING

REACTIONS (2)
  - MELAENA [None]
  - PALLOR [None]
